FAERS Safety Report 8523003-4 (Version None)
Quarter: 2012Q3

REPORT INFORMATION
  Report Type: 
  Country: None (occurrence: None)
  Receive Date: 20120720
  Receipt Date: 20120619
  Transmission Date: 20120928
  Serious: Yes (Hospitalization)
  Sender: FDA-Public Use
  Company Number: US-BAYER-200943019NA

PATIENT
  Age: 27 Year
  Sex: Female
  Weight: 104.31 kg

DRUGS (2)
  1. YASMIN [Suspect]
     Indication: CONTRACEPTION
     Dosage: UNK
     Dates: start: 20060301, end: 20070401
  2. YASMIN [Suspect]
     Indication: MENSTRUAL CYCLE MANAGEMENT
     Dosage: UNK
     Dates: start: 20061101, end: 20070301

REACTIONS (14)
  - PAIN IN EXTREMITY [None]
  - THROMBOSIS [None]
  - VEIN DISORDER [None]
  - INSOMNIA [None]
  - VARICOSE VEIN [None]
  - FEAR [None]
  - PULMONARY EMBOLISM [None]
  - NAUSEA [None]
  - VOMITING [None]
  - DEEP VEIN THROMBOSIS [None]
  - OEDEMA PERIPHERAL [None]
  - GAIT DISTURBANCE [None]
  - ANXIETY [None]
  - MIGRAINE [None]
